FAERS Safety Report 5207501-7 (Version None)
Quarter: 2007Q1

REPORT INFORMATION
  Report Type: 
  Country: None (occurrence: None)
  Receive Date: 20070112
  Receipt Date: 20070109
  Transmission Date: 20070707
  Serious: Yes (Other)
  Sender: FDA-Public Use
  Company Number: US-ROXANE LABORATORIES, INC-2007-DE-00179GD

PATIENT
  Age: 60 Year
  Sex: Male

DRUGS (5)
  1. HYDROCHLOROTHIAZIDE [Suspect]
     Indication: HYPERTENSION
  2. METOPROLOL SUCCINATE [Suspect]
     Indication: HYPERTENSION
  3. AMLODIPINE [Suspect]
     Indication: HYPERTENSION
  4. VALSARTAN [Suspect]
     Indication: HYPERTENSION
  5. OTHER DRUGS [Concomitant]

REACTIONS (3)
  - PRESYNCOPE [None]
  - SINUS ARRHYTHMIA [None]
  - SYNCOPE [None]
